FAERS Safety Report 4322286-4 (Version None)
Quarter: 2004Q1

REPORT INFORMATION
  Report Type: 
  Country: None (occurrence: None)
  Receive Date: 20040323
  Receipt Date: 20040323
  Transmission Date: 20041129
  Serious: No
  Sender: FDA-Public Use
  Company Number: None

PATIENT
  Age: 35 Year
  Sex: Female
  Weight: 57.6068 kg

DRUGS (1)
  1. SANDOSTATIN [Suspect]
     Indication: DIARRHOEA
     Dosage: 0.05 MG 0.05 MG BI IM
     Route: 030
     Dates: start: 20040317, end: 20040417

REACTIONS (1)
  - MEDICATION ERROR [None]
